FAERS Safety Report 7295259-X (Version None)
Quarter: 2011Q1

REPORT INFORMATION
  Report Type: 
  Country: None (occurrence: None)
  Receive Date: 20110216
  Receipt Date: 20110209
  Transmission Date: 20110831
  Serious: Yes (Hospitalization)
  Sender: FDA-Public Use
  Company Number: US-JNJFOC-20110203576

PATIENT
  Sex: Female
  Weight: 46.5 kg

DRUGS (5)
  1. MESALAMINE [Concomitant]
     Route: 048
  2. ANTIBIOTICS UNSPECIFIED [Concomitant]
     Indication: INFLAMMATORY BOWEL DISEASE
  3. BUDESONIDE [Concomitant]
  4. INFLIXIMAB, RECOMBINANT [Suspect]
     Indication: INFLAMMATORY BOWEL DISEASE
     Route: 042
  5. PREDNISONE TAB [Concomitant]

REACTIONS (1)
  - GUTTATE PSORIASIS [None]
